FAERS Safety Report 5364889-4 (Version None)
Quarter: 2007Q2

REPORT INFORMATION
  Report Type: 
  Country: None (occurrence: None)
  Receive Date: 20070621
  Receipt Date: 20070613
  Transmission Date: 20071010
  Serious: Yes (Congenital Anomaly)
  Sender: FDA-Public Use
  Company Number: DE-ABBOTT-07P-062-0371356-00

PATIENT

DRUGS (2)
  1. HUMIRA [Suspect]
     Indication: TRANSMISSION OF DRUG VIA SEMEN
     Route: 050
  2. METHOTREXATE [Suspect]
     Indication: TRANSMISSION OF DRUG VIA SEMEN
     Route: 050

REACTIONS (4)
  - AUTOSOMAL CHROMOSOME ANOMALY [None]
  - CHROMOSOME ABNORMALITY [None]
  - INFANTILE SPASMS [None]
  - TRANSMISSION OF DRUG VIA SEMEN [None]
